FAERS Safety Report 9462122 (Version 1)
Quarter: 2013Q3

REPORT INFORMATION
  Report Type: Spontaneous
  Country: US (occurrence: None)
  Receive Date: 20130815
  Receipt Date: 20130815
  Transmission Date: 20140515
  Serious: Yes (Hospitalization)
  Sender: FDA-Public Use
  Company Number: None

PATIENT
  Age: 53 None
  Sex: Male
  Weight: 120.4 kg

DRUGS (11)
  1. FENTANYL [Suspect]
     Dosage: 2ML = 100MCG, ONCE, IV
     Route: 042
  2. MIDAZOLAM [Suspect]
     Route: 042
  3. ROPIVACAINE [Suspect]
  4. BUPIVACAINE [Suspect]
  5. ANCEF [Concomitant]
  6. LR [Concomitant]
  7. BACITRACIN [Concomitant]
  8. INTRALIPIDS [Concomitant]
  9. PROPOFOL [Concomitant]
  10. ZOFRAN [Concomitant]
  11. BENADRYL [Concomitant]

REACTIONS (5)
  - Hyperhidrosis [None]
  - Confusional state [None]
  - Aphasia [None]
  - Dyskinesia [None]
  - Transient ischaemic attack [None]
